FAERS Safety Report 23440175 (Version 3)
Quarter: 2024Q2

REPORT INFORMATION
  Report Type: Spontaneous
  Country: JP (occurrence: JP)
  Receive Date: 20240124
  Receipt Date: 20240418
  Transmission Date: 20240716
  Serious: Yes (Hospitalization)
  Sender: FDA-Public Use
  Company Number: JP-002147023-NVSJ2024JP001127

PATIENT
  Age: 46 Year
  Sex: Female

DRUGS (2)
  1. KESIMPTA [Suspect]
     Active Substance: OFATUMUMAB
     Indication: Multiple sclerosis
     Dosage: UNK
     Route: 058
     Dates: start: 20221210
  2. ERENUMAB [Suspect]
     Active Substance: ERENUMAB
     Indication: Product used for unknown indication
     Dosage: UNK
     Route: 065
     Dates: start: 2022

REACTIONS (7)
  - Multiple sclerosis relapse [Recovering/Resolving]
  - Movement disorder [Unknown]
  - Optic neuritis [Recovered/Resolved]
  - Colour blindness [Recovered/Resolved]
  - Eye pain [Unknown]
  - Pupillary reflex impaired [Recovering/Resolving]
  - Paranasal sinus mucosal hypertrophy [Not Recovered/Not Resolved]

NARRATIVE: CASE EVENT DATE: 20231101
